FAERS Safety Report 5514551-X (Version None)
Quarter: 2007Q4

REPORT INFORMATION
  Report Type: 
  Country: None (occurrence: None)
  Receive Date: 20071113
  Receipt Date: 20071105
  Transmission Date: 20080405
  Serious: Yes (Other)
  Sender: FDA-Public Use
  Company Number: A0694000A

PATIENT
  Sex: Female

DRUGS (1)
  1. MALARONE [Suspect]
     Indication: MALARIA PROPHYLAXIS

REACTIONS (3)
  - ARTHROPOD BITE [None]
  - HEPATIC ENZYME INCREASED [None]
  - SCAR [None]
